FAERS Safety Report 4519127-9 (Version None)
Quarter: 2004Q4

REPORT INFORMATION
  Report Type: 
  Country: None (occurrence: None)
  Receive Date: 20041206
  Receipt Date: 20041130
  Transmission Date: 20050328
  Serious: Yes (Hospitalization, Disabling, Other)
  Sender: FDA-Public Use
  Company Number: GB-JNJFOC-20041200490

PATIENT
  Age: 50 Year

DRUGS (4)
  1. RISPERDAL [Suspect]
     Indication: SCHIZOPHRENIA
     Route: 049
  2. OLANZAPINE [Suspect]
     Indication: SCHIZOPHRENIA
     Dosage: 10- 15 MG DAILY DOSE
     Route: 049
  3. ZOPLICONE [Concomitant]
     Indication: INSOMNIA
     Route: 049
  4. BENDROFLUAZIDE [Concomitant]
     Indication: BLOOD PRESSURE
     Route: 049

REACTIONS (1)
  - PERSONALITY CHANGE [None]
